FAERS Safety Report 6157736-4 (Version None)
Quarter: 2009Q2

REPORT INFORMATION
  Report Type: 
  Country: None (occurrence: None)
  Receive Date: 20090414
  Receipt Date: 20090402
  Transmission Date: 20091009
  Serious: Yes (Other)
  Sender: FDA-Public Use
  Company Number: CERZ-1000588

PATIENT
  Age: 64 Year
  Sex: Male
  Weight: 61.8 kg

DRUGS (1)
  1. CEREZYME [Suspect]
     Indication: GAUCHER'S DISEASE
     Dosage: 64 U/KG, Q2W; INTRAVENOUS
     Route: 042
     Dates: start: 19980711

REACTIONS (6)
  - ABDOMINAL PAIN UPPER [None]
  - ARTHROPATHY [None]
  - BONE PAIN [None]
  - INFLAMMATION [None]
  - INFLUENZA [None]
  - MUSCLE FATIGUE [None]
